FAERS Safety Report 10184918 (Version 3)
Quarter: 2014Q2

REPORT INFORMATION
  Report Type: Spontaneous
  Country: MX (occurrence: MX)
  Receive Date: 20140521
  Receipt Date: 20140617
  Transmission Date: 20141212
  Serious: Yes (Disabling)
  Sender: FDA-Public Use
  Company Number: MX-ELI_LILLY_AND_COMPANY-MX201405004312

PATIENT
  Age: 63 Year
  Sex: Female

DRUGS (8)
  1. FORTEO [Suspect]
     Indication: PRODUCT USED FOR UNKNOWN INDICATION
     Dosage: 20 UG, UNKNOWN
     Route: 065
     Dates: start: 20140102
  2. FORTEO [Suspect]
     Dosage: 20 UG, UNKNOWN
     Route: 065
  3. B COMPLEX                          /00212701/ [Concomitant]
     Indication: PRODUCT USED FOR UNKNOWN INDICATION
     Dosage: UNK, UNKNOWN
     Route: 065
  4. VITAMIN C                          /00008001/ [Concomitant]
     Indication: PRODUCT USED FOR UNKNOWN INDICATION
     Dosage: UNK, UNKNOWN
     Route: 065
  5. NEUROTIN                           /00949202/ [Concomitant]
     Indication: PAIN
     Dosage: 1 DF, BID
     Route: 065
     Dates: start: 201308
  6. IMMUNOCAL [Concomitant]
     Indication: IMMUNE SYSTEM DISORDER
     Dosage: 2 DF, QID
  7. OMEPRAZOL                          /00661201/ [Concomitant]
     Indication: GASTRITIS
     Dosage: UNK, OTHER
     Route: 065
  8. OMEPRAZOL                          /00661201/ [Concomitant]
     Indication: COLITIS

REACTIONS (5)
  - Fibromyalgia [Not Recovered/Not Resolved]
  - Drug dose omission [Unknown]
  - Pain in extremity [Unknown]
  - Trigger finger [Unknown]
  - Pain [Unknown]
